FAERS Safety Report 9440121 (Version 1)
Quarter: 2013Q3

REPORT INFORMATION
  Report Type: Spontaneous
  Country: US (occurrence: US)
  Receive Date: 20130805
  Receipt Date: 20130805
  Transmission Date: 20140515
  Serious: Yes (Other)
  Sender: FDA-Public Use
  Company Number: US-PFIZER INC-2013226504

PATIENT
  Age: 53 Year
  Sex: Female
  Weight: 90.7 kg

DRUGS (19)
  1. NEURONTIN [Suspect]
     Indication: NEUROPATHY PERIPHERAL
     Dosage: UNK
     Route: 048
  2. NEURONTIN [Suspect]
     Dosage: 600 MG, 2X/DAY
     Route: 048
     Dates: end: 201307
  3. VITAMIN D [Concomitant]
     Indication: VITAMIN D DEFICIENCY
     Dosage: UNK
  4. CELEXA [Concomitant]
     Dosage: UNK
  5. SYNTHROID [Concomitant]
     Dosage: UNK
  6. JANUMET [Concomitant]
     Dosage: UNK
  7. ASPIRIN [Concomitant]
     Dosage: 81 MG, 1X/DAY
  8. TRAZODONE [Concomitant]
     Dosage: UNK
  9. METANX [Concomitant]
     Dosage: UNK
  10. ALBUTEROL [Concomitant]
     Dosage: UNK
  11. RHINOCORT [Concomitant]
     Dosage: UNK
  12. LEVEMIR [Concomitant]
     Dosage: UNK
  13. CINNAMON [Concomitant]
     Dosage: UNK
  14. GINKGO BILOBA [Concomitant]
     Dosage: UNK
  15. VITAMIN E [Concomitant]
     Dosage: UNK
  16. BIOTIN [Concomitant]
     Dosage: UNK
  17. CO-Q-10 [Concomitant]
     Dosage: UNK
  18. SUPER BIOTIN [Concomitant]
     Dosage: UNK
  19. ACIDOPHILUS [Concomitant]
     Dosage: UNK

REACTIONS (4)
  - Off label use [Unknown]
  - Diabetes mellitus [Unknown]
  - Thyroid function test abnormal [Unknown]
  - Malaise [Recovered/Resolved]
